FAERS Safety Report 8071438-9 (Version None)
Quarter: 2012Q1

REPORT INFORMATION
  Report Type: 
  Country: None (occurrence: None)
  Receive Date: 20120125
  Receipt Date: 20120118
  Transmission Date: 20120608
  Serious: Yes (Other)
  Sender: FDA-Public Use
  Company Number: US-US-EMD SERONO, INC.-7011711

PATIENT
  Sex: Female
  Weight: 101 kg

DRUGS (7)
  1. METFORMIN HCL [Concomitant]
     Route: 048
  2. OMEPRAZOLE [Concomitant]
     Route: 048
  3. SPIRONOLACTONE [Concomitant]
     Route: 048
  4. METHYLPREDNISOLONE [Suspect]
  5. SYNTHROID [Concomitant]
  6. REBIF [Suspect]
     Indication: RELAPSING-REMITTING MULTIPLE SCLEROSIS
     Route: 058
     Dates: start: 20060207
  7. FOSAMAX [Concomitant]

REACTIONS (6)
  - OSTEOPENIA [None]
  - HAIR GROWTH ABNORMAL [None]
  - ANKLE FRACTURE [None]
  - ROAD TRAFFIC ACCIDENT [None]
  - FALL [None]
  - INTERVERTEBRAL DISC PROTRUSION [None]
